FAERS Safety Report 4619914-2 (Version None)
Quarter: 2005Q1

REPORT INFORMATION
  Report Type: 
  Country: None (occurrence: None)
  Receive Date: 20050321
  Receipt Date: 20050321
  Transmission Date: 20050727
  Serious: Yes (Death)
  Sender: FDA-Public Use
  Company Number: None

PATIENT
  Age: 77 Year
  Sex: Female
  Weight: 121.564 kg

DRUGS (7)
  1. OLMESARTAN [Suspect]
     Indication: HYPERTENSION
  2. EXEMESTANE [Suspect]
     Indication: BREAST CANCER
  3. THEOPHYLLINE [Concomitant]
  4. HYDROCHLOROTHIAZIDE [Concomitant]
  5. ADVAIR DISKUS 100/50 [Concomitant]
  6. ALBUTEROL [Concomitant]
  7. TYLENOL (CAPLET) [Concomitant]

REACTIONS (6)
  - CARDIO-RESPIRATORY ARREST [None]
  - COMA [None]
  - HAEMATEMESIS [None]
  - HAEMODIALYSIS [None]
  - OESOPHAGITIS HAEMORRHAGIC [None]
  - RENAL FAILURE ACUTE [None]
